FAERS Safety Report 5575051-4 (Version None)
Quarter: 2007Q4

REPORT INFORMATION
  Report Type: 
  Country: None (occurrence: None)
  Receive Date: 20071221
  Receipt Date: 20071221
  Transmission Date: 20080405
  Serious: Yes (Hospitalization)
  Sender: FDA-Public Use
  Company Number: None

PATIENT
  Age: 19 Year
  Sex: Male
  Weight: 79.3795 kg

DRUGS (1)
  1. ACCUTANE [Suspect]
     Indication: ACNE
     Dosage: 2 PILLS PER DAY
     Dates: start: 20070419, end: 20070621

REACTIONS (5)
  - ABNORMAL BEHAVIOUR [None]
  - FLIGHT OF IDEAS [None]
  - HALLUCINATION [None]
  - JUDGEMENT IMPAIRED [None]
  - MANIA [None]
